FAERS Safety Report 10870088 (Version 1)
Quarter: 2015Q1

REPORT INFORMATION
  Report Type: Spontaneous
  Country: DK (occurrence: DK)
  Receive Date: 20150226
  Receipt Date: 20150226
  Transmission Date: 20150721
  Serious: Yes (Hospitalization)
  Sender: FDA-Public Use
  Company Number: DK-ROCHE-1543826

PATIENT
  Age: 67 Year
  Sex: Female

DRUGS (3)
  1. CALCIUM CARBONATE/CHOLECALCIFEROL [Concomitant]
     Active Substance: CALCIUM CARBONATE\CHOLECALCIFEROL
     Route: 065
     Dates: start: 20140423
  2. PREDNISOLONE ^DAK^ [Concomitant]
     Active Substance: PREDNISOLONE
     Indication: CHRONIC LYMPHOCYTIC LEUKAEMIA
     Route: 048
     Dates: start: 20140416
  3. MABTHERA [Suspect]
     Active Substance: RITUXIMAB
     Indication: CHRONIC LYMPHOCYTIC LEUKAEMIA
     Route: 065
     Dates: start: 20140423, end: 20140611

REACTIONS (8)
  - Fatigue [Recovered/Resolved]
  - Myocardial ischaemia [Unknown]
  - General physical health deterioration [Recovered/Resolved]
  - Myalgia [Unknown]
  - Sensory disturbance [Not Recovered/Not Resolved]
  - Back pain [Unknown]
  - Tremor [Recovered/Resolved]
  - Arthralgia [Not Recovered/Not Resolved]

NARRATIVE: CASE EVENT DATE: 201405
